FAERS Safety Report 5727269-5 (Version None)
Quarter: 2008Q2

REPORT INFORMATION
  Report Type: 
  Country: None (occurrence: None)
  Receive Date: 20080505
  Receipt Date: 20080428
  Transmission Date: 20081010
  Serious: Yes (Other)
  Sender: FDA-Public Use
  Company Number: PHHY2008AU03309

PATIENT
  Age: 66 Year
  Sex: Female

DRUGS (2)
  1. ESTRADERM [Suspect]
     Indication: HORMONE REPLACEMENT THERAPY
     Dosage: 50 MCG
  2. METOPROLOL TARTRATE [Concomitant]
     Dates: start: 20080201

REACTIONS (3)
  - ATRIAL FIBRILLATION [None]
  - HOT FLUSH [None]
  - NAUSEA [None]
